FAERS Safety Report 4289512-1 (Version None)
Quarter: 2004Q1

REPORT INFORMATION
  Report Type: 
  Country: None (occurrence: None)
  Receive Date: 20040126
  Receipt Date: 20031103
  Transmission Date: 20041129
  Serious: No
  Sender: FDA-Public Use
  Company Number: USA030435259

PATIENT
  Age: 77 Year
  Sex: Female
  Weight: 68 kg

DRUGS (8)
  1. FORTEO [Suspect]
     Indication: OSTEOPOROSIS
     Dosage: 20 UG
     Dates: start: 20030313
  2. ARICEPT [Concomitant]
  3. CLIMARA [Concomitant]
  4. DYAZIDE [Concomitant]
  5. KLONOPIN [Concomitant]
  6. MOBIC [Concomitant]
  7. NEXIUM [Concomitant]
  8. VITAMIN C [Concomitant]

REACTIONS (8)
  - BLOOD PRESSURE INCREASED [None]
  - BURNING SENSATION [None]
  - HEADACHE [None]
  - INFLUENZA LIKE ILLNESS [None]
  - LOWER EXTREMITY MASS [None]
  - MUSCLE CRAMP [None]
  - OEDEMA PERIPHERAL [None]
  - PAIN IN EXTREMITY [None]
